FAERS Safety Report 9473040 (Version 2)
Quarter: 2013Q3

REPORT INFORMATION
  Report Type: Spontaneous
  Country: US (occurrence: US)
  Receive Date: 20130823
  Receipt Date: 20130823
  Transmission Date: 20140515
  Serious: No
  Sender: FDA-Public Use
  Company Number: US-BRISTOL-MYERS SQUIBB COMPANY-17359282

PATIENT
  Age: 73 Year
  Sex: Male
  Weight: 84.8 kg

DRUGS (7)
  1. SPRYCEL [Suspect]
     Indication: CHRONIC MYELOID LEUKAEMIA
     Dosage: REDUCED:80MG EVERY OTHER DAY:03FEB2013
     Route: 048
     Dates: start: 20130207
  2. TYLENOL PM [Suspect]
  3. FLECAINIDE [Concomitant]
     Indication: ATRIAL FIBRILLATION
  4. AVODART [Concomitant]
     Indication: PROSTATIC DISORDER
  5. TAMSULOSIN [Concomitant]
     Indication: DRUG THERAPY
  6. DILTIAZEM HCL [Concomitant]
  7. ALLOPURINOL [Concomitant]
     Indication: BLOOD URIC ACID

REACTIONS (5)
  - Hepatic enzyme increased [Recovered/Resolved]
  - Fatigue [Unknown]
  - Blood uric acid abnormal [Unknown]
  - White blood cell count decreased [Unknown]
  - Platelet count decreased [Unknown]
